FAERS Safety Report 5875717-2 (Version None)
Quarter: 2008Q3

REPORT INFORMATION
  Report Type: 
  Country: None (occurrence: None)
  Receive Date: 20080905
  Receipt Date: 20080828
  Transmission Date: 20090109
  Serious: Yes (Other)
  Sender: FDA-Public Use
  Company Number: 032993

PATIENT
  Age: 61 Year
  Sex: Female
  Weight: 59 kg

DRUGS (4)
  1. OXYCODONE HYDROCHLORIDE AND IBUPROFEN [Suspect]
     Indication: PAIN
     Dosage: 1 TABLET, QID, ORAL
     Route: 048
     Dates: start: 20080827, end: 20080828
  2. UNSPECIFIED PAIN MEDICATIONS [Concomitant]
  3. VITAMIN TAB [Concomitant]
  4. UNSPECIFIED HORMONE MEDICATIONS [Concomitant]

REACTIONS (6)
  - COGNITIVE DISORDER [None]
  - COMMUNICATION DISORDER [None]
  - DIZZINESS [None]
  - MOBILITY DECREASED [None]
  - SLUGGISHNESS [None]
  - THINKING ABNORMAL [None]
